FAERS Safety Report 8576099-8 (Version None)
Quarter: 2012Q3

REPORT INFORMATION
  Report Type: 
  Country: None (occurrence: None)
  Receive Date: 20120807
  Receipt Date: 20120718
  Transmission Date: 20120928
  Serious: No
  Sender: FDA-Public Use
  Company Number: US-009507513-2012SP035902

PATIENT

DRUGS (14)
  1. CLARITIN [Suspect]
     Indication: NASAL CONGESTION
  2. NAMENDA [Concomitant]
     Indication: MEMORY IMPAIRMENT
     Dosage: UNK, UNKNOWN
  3. CLARITIN [Suspect]
     Indication: UPPER-AIRWAY COUGH SYNDROME
     Dosage: 10 MG, QD
     Route: 048
     Dates: start: 20120503
  4. PRILOSEC [Concomitant]
     Indication: GASTROOESOPHAGEAL REFLUX DISEASE
     Dosage: UNK, UNKNOWN
  5. LIBRAX [Concomitant]
     Indication: IRRITABLE BOWEL SYNDROME
     Dosage: UNK, PRN
  6. CLARITIN [Suspect]
     Indication: COUGH
  7. SYNTHROID [Concomitant]
     Indication: HYPOTHYROIDISM
     Dosage: UNK, UNKNOWN
  8. CYMBALTA [Concomitant]
     Indication: FIBROMYALGIA
     Dosage: UNK, UNKNOWN
  9. CLARITIN [Suspect]
     Indication: INCREASED UPPER AIRWAY SECRETION
  10. CLARITIN [Suspect]
     Indication: MEDICAL OBSERVATION
  11. AMOXAPINE [Concomitant]
     Indication: PRODUCT USED FOR UNKNOWN INDICATION
     Dosage: UNK, UNKNOWN
  12. BAYER SELECT PAIN RELIEF FORMULA [Concomitant]
     Indication: HEADACHE
     Dosage: UNK, UNKNOWN
  13. DILTIAZEM HCL [Concomitant]
     Indication: BLOOD PRESSURE
     Dosage: 2 DF, UNKNOWN
  14. ACETAMINOPHEN, ASPIRIN AND CAFFEINE [Concomitant]
     Indication: HEADACHE
     Dosage: UNK, UNKNOWN

REACTIONS (2)
  - DRUG INEFFECTIVE FOR UNAPPROVED INDICATION [None]
  - DRUG INEFFECTIVE [None]
